FAERS Safety Report 9891249 (Version 2)
Quarter: 2014Q1

REPORT INFORMATION
  Report Type: Spontaneous
  Country: NL (occurrence: None)
  Receive Date: 20140210
  Receipt Date: 20140218
  Transmission Date: 20141002
  Serious: Yes (Other)
  Sender: FDA-Public Use
  Company Number: 2014AP001031

PATIENT
  Age: 49 Year
  Sex: Male

DRUGS (5)
  1. CIPROFLOXACIN (CIPROFLOXACIN) [Suspect]
  2. CLOZAPINE (CLOZAPINE) [Suspect]
  3. MIDAZOLAM [Concomitant]
  4. PRAXITEN PLIVA (OXAZEPAM) (OXAZEPAM) [Concomitant]
  5. PANTOPRAZOLE (PANTHPRAZOLE) [Concomitant]

REACTIONS (3)
  - Toxicity to various agents [None]
  - Inhibitory drug interaction [None]
  - Drug interaction [None]
